FAERS Safety Report 11007162 (Version 1)
Quarter: 2015Q2

REPORT INFORMATION
  Report Type: Spontaneous
  Country: US (occurrence: US)
  Receive Date: 20150409
  Receipt Date: 20150409
  Transmission Date: 20150821
  Serious: Yes (Hospitalization)
  Sender: FDA-Public Use
  Company Number: US-LUNDBECK-DKLU1110949

PATIENT
  Age: 14 Year
  Sex: Female

DRUGS (2)
  1. SABRIL [Suspect]
     Active Substance: VIGABATRIN
     Route: 065
     Dates: start: 20130826
  2. SABRIL [Suspect]
     Active Substance: VIGABATRIN
     Indication: COMPLEX PARTIAL SEIZURES
     Route: 065
     Dates: start: 20130826

REACTIONS (2)
  - Abdominal mass [Unknown]
  - Abdominal pain [Unknown]

NARRATIVE: CASE EVENT DATE: 201503
